FAERS Safety Report 9305344 (Version 1)
Quarter: 2013Q2

REPORT INFORMATION
  Report Type: Spontaneous
  Country: US (occurrence: None)
  Receive Date: 20130522
  Receipt Date: 20130522
  Transmission Date: 20140414
  Serious: Yes (Hospitalization)
  Sender: FDA-Public Use
  Company Number: None

PATIENT
  Age: 78 Year
  Sex: Male
  Weight: 111 kg

DRUGS (2)
  1. MIDAZOLAM [Suspect]
     Route: 042
     Dates: start: 20130111, end: 20130111
  2. FENTANYL [Suspect]
     Route: 042
     Dates: start: 20130111, end: 20130111

REACTIONS (1)
  - Hypotension [None]
